FAERS Safety Report 6359554-0 (Version None)
Quarter: 2009Q3

REPORT INFORMATION
  Report Type: 
  Country: None (occurrence: None)
  Receive Date: 20090917
  Receipt Date: 20090912
  Transmission Date: 20100115
  Serious: Yes (Other)
  Sender: FDA-Public Use
  Company Number: JP-ELI_LILLY_AND_COMPANY-JP200909003082

PATIENT
  Age: 81 Year
  Sex: Male

DRUGS (2)
  1. HUMALOG MIX 50/50 [Suspect]
     Dosage: 16 U, EACH MORNING
     Route: 058
     Dates: start: 20090910
  2. HUMALOG MIX 50/50 [Suspect]
     Dosage: 16 U, EACH EVENING
     Route: 058
     Dates: start: 20090910

REACTIONS (1)
  - INCORRECT DOSE ADMINISTERED [None]
